FAERS Safety Report 5406694-6 (Version None)
Quarter: 2007Q3

REPORT INFORMATION
  Report Type: 
  Country: None (occurrence: None)
  Receive Date: 20070803
  Receipt Date: 20070803
  Transmission Date: 20080115
  Serious: Yes (Hospitalization)
  Sender: FDA-Public Use
  Company Number: None

PATIENT
  Age: 37 Year
  Sex: Female

DRUGS (4)
  1. CAMPTOSAR [Suspect]
     Indication: COLON CANCER
     Dosage: 528 MG Q 3 WK INFU
     Dates: start: 20070720
  2. CAMPTOSAR [Suspect]
     Indication: METASTASES TO LIVER
     Dosage: 528 MG Q 3 WK INFU
     Dates: start: 20070720
  3. AVASTIN [Suspect]
     Indication: COLON CANCER
     Dosage: 835 MG Q 3 WK INFU
     Dates: start: 20070720
  4. AVASTIN [Suspect]
     Indication: METASTASES TO LIVER
     Dosage: 835 MG Q 3 WK INFU
     Dates: start: 20070720

REACTIONS (4)
  - HEADACHE [None]
  - NAUSEA [None]
  - ORAL INTAKE REDUCED [None]
  - VOMITING [None]
